FAERS Safety Report 23129633 (Version 2)
Quarter: 2023Q4

REPORT INFORMATION
  Report Type: Spontaneous
  Country: JP (occurrence: JP)
  Receive Date: 20231031
  Receipt Date: 20231109
  Transmission Date: 20240109
  Serious: Yes (Hospitalization, Other)
  Sender: FDA-Public Use
  Company Number: JP-ONO-2023JP026373

PATIENT
  Age: 75 Year
  Sex: Male

DRUGS (9)
  1. OPDIVO [Suspect]
     Active Substance: NIVOLUMAB
     Indication: Gastric cancer
     Dosage: UNK
     Route: 041
  2. OPDIVO [Suspect]
     Active Substance: NIVOLUMAB
     Dosage: UNK
     Route: 041
  3. CANAGLIFLOZIN\TENELIGLIPTIN [Suspect]
     Active Substance: CANAGLIFLOZIN\TENELIGLIPTIN
     Indication: Product used for unknown indication
     Dosage: UNK, ORAL DRUG UNSPECIFIED FORM
     Route: 048
  4. CARBAMAZEPINE [Concomitant]
     Active Substance: CARBAMAZEPINE
     Indication: Product used for unknown indication
     Dosage: UNK, ORAL DRUG UNSPECIFIED FORM
     Route: 048
  5. SENNOSIDES A AND B [Concomitant]
     Active Substance: SENNOSIDES A AND B
     Indication: Product used for unknown indication
     Dosage: UNK, ORAL DRUG UNSPECIFIED FORM
     Route: 048
  6. ZOLPIDEM TARTRATE [Concomitant]
     Active Substance: ZOLPIDEM TARTRATE
     Indication: Product used for unknown indication
     Dosage: UNK, ORAL DRUG UNSPECIFIED FORM
     Route: 048
  7. MAGNESIUM OXIDE [Concomitant]
     Active Substance: MAGNESIUM OXIDE
     Indication: Product used for unknown indication
     Dosage: UNK, ORAL DRUG UNSPECIFIED FORM
     Route: 048
  8. METFORMIN HYDROCHLORIDE [Concomitant]
     Active Substance: METFORMIN HYDROCHLORIDE
     Indication: Product used for unknown indication
     Dosage: UNK, ORAL DRUG UNSPECIFIED FORM
     Route: 048
  9. MOSAPRIDE CITRATE [Concomitant]
     Active Substance: MOSAPRIDE CITRATE
     Indication: Product used for unknown indication
     Dosage: UNK, ORAL DRUG UNSPECIFIED FORM
     Route: 048

REACTIONS (1)
  - Pemphigoid [Recovering/Resolving]
